FAERS Safety Report 15750867 (Version 1)
Quarter: 2018Q4

REPORT INFORMATION
  Report Type: Spontaneous
  Country: ES (occurrence: ES)
  Receive Date: 20181221
  Receipt Date: 20181221
  Transmission Date: 20190205
  Serious: Yes (Other)
  Sender: FDA-Public Use
  Company Number: ES-JNJFOC-20181217576

PATIENT
  Sex: Male

DRUGS (4)
  1. DARZALEX [Suspect]
     Active Substance: DARATUMUMAB
     Indication: PLASMA CELL MYELOMA
     Dosage: 50 ML TO 100 ML
     Route: 065
  2. DEXAMETHASONE. [Suspect]
     Active Substance: DEXAMETHASONE
     Indication: PLASMA CELL MYELOMA
     Route: 065
  3. VELCADE [Suspect]
     Active Substance: BORTEZOMIB
     Indication: PLASMA CELL MYELOMA
     Route: 065
  4. DARZALEX [Suspect]
     Active Substance: DARATUMUMAB
     Indication: PLASMA CELL MYELOMA
     Route: 065

REACTIONS (6)
  - Cyanosis [Recovered/Resolved]
  - Tachycardia [Recovered/Resolved]
  - Rash pruritic [Recovered/Resolved]
  - Cardiac fibrillation [Recovered/Resolved]
  - Cardiac disorder [Recovered/Resolved]
  - Infusion related reaction [Recovered/Resolved]
